FAERS Safety Report 12111569 (Version 2)
Quarter: 2016Q2

REPORT INFORMATION
  Report Type: Spontaneous
  Country: US (occurrence: US)
  Receive Date: 20160224
  Receipt Date: 20160417
  Transmission Date: 20160815
  Serious: No
  Sender: FDA-Public Use
  Company Number: US-009507513-1602USA009467

PATIENT
  Age: 40 Year
  Sex: Female
  Weight: 92.63 kg

DRUGS (1)
  1. NUVARING [Suspect]
     Active Substance: ETHINYL ESTRADIOL\ETONOGESTREL
     Indication: CONTRACEPTION
     Dosage: STRENGHT; .015/.12MG 1 RING, INSERTED FOR THREE WEEKS
     Route: 067
     Dates: start: 20160112

REACTIONS (3)
  - Product packaging issue [Unknown]
  - Device expulsion [Unknown]
  - Incorrect drug administration duration [Unknown]

NARRATIVE: CASE EVENT DATE: 20160202
